FAERS Safety Report 10210754 (Version 1)
Quarter: 2014Q2

REPORT INFORMATION
  Report Type: Spontaneous
  Country: CA (occurrence: None)
  Receive Date: 20140530
  Receipt Date: 20140530
  Transmission Date: 20141212
  Serious: Yes (Hospitalization)
  Sender: FDA-Public Use
  Company Number: None

PATIENT
  Age: 54 Year
  Sex: Male
  Weight: 85.2 kg

DRUGS (5)
  1. CISPLATIN [Suspect]
  2. ASPIRINE [Concomitant]
  3. DILAUDID [Concomitant]
  4. LIPITOR [Concomitant]
  5. LOPRESSOR [Concomitant]

REACTIONS (4)
  - Odynophagia [None]
  - Blood creatinine increased [None]
  - Dehydration [None]
  - Treatment noncompliance [None]
